FAERS Safety Report 22524006 (Version 2)
Quarter: 2023Q2

REPORT INFORMATION
  Report Type: Spontaneous
  Country: CN (occurrence: CN)
  Receive Date: 20230606
  Receipt Date: 20230621
  Transmission Date: 20230721
  Serious: Yes (Death, Other)
  Sender: FDA-Public Use
  Company Number: CN-BoehringerIngelheim-2023-BI-240354

PATIENT
  Age: 77 Year
  Sex: Male
  Weight: 59 kg

DRUGS (4)
  1. ALTEPLASE [Suspect]
     Active Substance: ALTEPLASE
     Indication: Thrombolysis
     Dosage: BOLUS INJECTION FOR 1 MINUTE
     Route: 040
     Dates: start: 20230313, end: 20230313
  2. ALTEPLASE [Suspect]
     Active Substance: ALTEPLASE
     Indication: Cerebral infarction
     Dosage: MICRO PUMPED FOR 1 HOUR)
     Route: 042
     Dates: start: 20230313, end: 20230313
  3. ALTEPLASE [Suspect]
     Active Substance: ALTEPLASE
     Indication: Ischaemic stroke
  4. URAPIDIL [Concomitant]
     Active Substance: URAPIDIL
     Indication: Hypertension
     Route: 040
     Dates: start: 20230313

REACTIONS (4)
  - Death [Fatal]
  - Brain stem haemorrhage [Unknown]
  - Brain herniation [Unknown]
  - Gingival bleeding [Unknown]

NARRATIVE: CASE EVENT DATE: 20230313
